FAERS Safety Report 12886700 (Version 1)
Quarter: 2016Q4

REPORT INFORMATION
  Report Type: Report from Study
  Country: ES (occurrence: ES)
  Receive Date: 20161026
  Receipt Date: 20161026
  Transmission Date: 20170207
  Serious: Yes (Life-Threatening, Hospitalization)
  Sender: FDA-Public Use
  Company Number: ES-JNJFOC-20161014012

PATIENT
  Sex: Male
  Weight: 69.5 kg

DRUGS (1)
  1. IMBRUVICA [Suspect]
     Active Substance: IBRUTINIB
     Indication: MANTLE CELL LYMPHOMA
     Route: 048

REACTIONS (4)
  - Neutropenia [Unknown]
  - Haemoglobin decreased [Unknown]
  - Pneumonia [Recovered/Resolved]
  - Thrombocytopenia [Unknown]
